FAERS Safety Report 16648988 (Version 1)
Quarter: 2019Q3

REPORT INFORMATION
  Report Type: Spontaneous
  Country: US (occurrence: US)
  Receive Date: 20190730
  Receipt Date: 20190730
  Transmission Date: 20191004
  Serious: Yes (Other)
  Sender: FDA-Public Use
  Company Number: US-TEVA-2019-US-1084113

PATIENT
  Age: 27 Year
  Sex: Male

DRUGS (7)
  1. ALECTINIB. [Concomitant]
     Active Substance: ALECTINIB
     Indication: ANAPLASTIC LARGE-CELL LYMPHOMA
     Dosage: 1200 MILLIGRAM DAILY;
     Route: 065
  2. METHOTREXATE. [Suspect]
     Active Substance: METHOTREXATE
     Indication: ANAPLASTIC LARGE-CELL LYMPHOMA
     Dosage: HIGH DOSE
     Route: 065
  3. VINCRISTINE [Suspect]
     Active Substance: VINCRISTINE
     Indication: ANAPLASTIC LARGE-CELL LYMPHOMA
     Dosage: EVERY 3 WEEKS
     Route: 065
  4. PREDNISONE. [Suspect]
     Active Substance: PREDNISONE
     Indication: ANAPLASTIC LARGE-CELL LYMPHOMA
     Dosage: FOR 5 DAYS, GIVEN EVERY 3 WEEKS
     Route: 065
  5. CYCLOPHOSPHAMIDE. [Suspect]
     Active Substance: CYCLOPHOSPHAMIDE
     Indication: ANAPLASTIC LARGE-CELL LYMPHOMA
     Dosage: EVERY 3 WEEKS
     Route: 065
  6. DOXORUBICIN [Suspect]
     Active Substance: DOXORUBICIN
     Indication: ANAPLASTIC LARGE-CELL LYMPHOMA
     Dosage: EVERY 3 WEEKS
     Route: 065
  7. ETOPOSIDE. [Suspect]
     Active Substance: ETOPOSIDE
     Indication: ANAPLASTIC LARGE-CELL LYMPHOMA
     Dosage: 100 MG/M2 DAILY; DAILY FOR 3 DAYS; EVERY 3 WEEKS
     Route: 065

REACTIONS (5)
  - Peripheral sensorimotor neuropathy [Unknown]
  - Transaminases increased [Unknown]
  - Oesophageal candidiasis [Unknown]
  - Mucosal inflammation [Unknown]
  - Pancytopenia [Unknown]
